FAERS Safety Report 15445868 (Version 2)
Quarter: 2018Q4

REPORT INFORMATION
  Report Type: Not Available
  Country: US (occurrence: US)
  Receive Date: 20180928
  Receipt Date: 20181224
  Transmission Date: 20190204
  Serious: No
  Sender: FDA-Public Use
  Company Number: US-NEUROCRINE BIOSCIENCES INC.-2018NBI02801

PATIENT
  Age: 47 Year
  Sex: Female

DRUGS (2)
  1. INGREZZA [Suspect]
     Active Substance: VALBENAZINE
     Route: 048
     Dates: start: 20170827
  2. INGREZZA [Suspect]
     Active Substance: VALBENAZINE
     Indication: TARDIVE DYSKINESIA
     Route: 048
     Dates: start: 20170819, end: 20170826

REACTIONS (5)
  - Fatigue [Unknown]
  - Alopecia [Not Recovered/Not Resolved]
  - Trichorrhexis [Unknown]
  - Migraine [Unknown]
  - Somnolence [Unknown]

NARRATIVE: CASE EVENT DATE: 20180810
